FAERS Safety Report 18585607 (Version 1)
Quarter: 2020Q4

REPORT INFORMATION
  Report Type: Spontaneous
  Country: US (occurrence: US)
  Receive Date: 20201204
  Receipt Date: 20201204
  Transmission Date: 20210114
  Serious: Yes (Hospitalization)
  Sender: FDA-Public Use
  Company Number: None

PATIENT
  Sex: Male

DRUGS (11)
  1. BUDES/FORMOT AER [Concomitant]
  2. VITAMIN D3 [Concomitant]
     Active Substance: CHOLECALCIFEROL
  3. CREON [Suspect]
     Active Substance: PANCRELIPASE AMYLASE\PANCRELIPASE LIPASE\PANCRELIPASE PROTEASE
     Indication: CYSTIC FIBROSIS
     Dates: start: 20140118
  4. CREON [Suspect]
     Active Substance: PANCRELIPASE AMYLASE\PANCRELIPASE LIPASE\PANCRELIPASE PROTEASE
     Indication: CYSTIC FIBROSIS
     Route: 048
     Dates: start: 20140118
  5. CYPROHEPTADINE. [Concomitant]
     Active Substance: CYPROHEPTADINE
  6. NEXIUM [Concomitant]
     Active Substance: ESOMEPRAZOLE MAGNESIUM
  7. AMOX/K CLAV [Concomitant]
     Active Substance: AMOXICILLIN\CLAVULANATE POTASSIUM
  8. DEKAS PLUS [Concomitant]
  9. PULMOZYME [Concomitant]
     Active Substance: DORNASE ALFA
  10. ALBUTEROL AER [Concomitant]
     Active Substance: ALBUTEROL
  11. URSODIOL. [Concomitant]
     Active Substance: URSODIOL

REACTIONS (1)
  - Pneumonia [None]
